FAERS Safety Report 18616063 (Version 1)
Quarter: 2020Q4

REPORT INFORMATION
  Report Type: Spontaneous
  Country: CA (occurrence: CA)
  Receive Date: 20201214
  Receipt Date: 20201214
  Transmission Date: 20210114
  Serious: Yes (Other)
  Sender: FDA-Public Use
  Company Number: NVSC2020CA327706

PATIENT
  Sex: Female

DRUGS (1)
  1. DUREZOL [Suspect]
     Active Substance: DIFLUPREDNATE
     Indication: CATARACT OPERATION COMPLICATION
     Dosage: 1 DRP, BID
     Route: 047
     Dates: start: 20201130, end: 20201202

REACTIONS (4)
  - Eye swelling [Unknown]
  - Eye pruritus [Unknown]
  - Ocular hyperaemia [Unknown]
  - Eye pain [Unknown]
